FAERS Safety Report 4404795-2 (Version None)
Quarter: 2004Q3

REPORT INFORMATION
  Report Type: 
  Country: None (occurrence: None)
  Receive Date: 20040722
  Receipt Date: 20040720
  Transmission Date: 20050211
  Serious: Yes (Other)
  Sender: FDA-Public Use
  Company Number: PHNU2004DE02571

PATIENT

DRUGS (1)
  1. SANDOSTATIN [Suspect]
     Indication: ACROMEGALY

REACTIONS (1)
  - GRANULOMA [None]
